FAERS Safety Report 26072939 (Version 2)
Quarter: 2025Q4

REPORT INFORMATION
  Report Type: Spontaneous
  Country: EU (occurrence: EU)
  Receive Date: 20251121
  Receipt Date: 20251205
  Transmission Date: 20260118
  Serious: Yes (Hospitalization)
  Sender: SANDOZ
  Company Number: EU-ABBVIE-6412910

PATIENT
  Age: 66 Year
  Sex: Male

DRUGS (17)
  1. CARBIDOPA\LEVODOPA [Suspect]
     Active Substance: CARBIDOPA\LEVODOPA
     Dosage: UNK, (20 MG + 5 MG (GASTRIC), FIRST  ADMIN DATE: 2025, MOR:10CC;MAINT:5;EXTR: 4.5CC), PERCUTANEOUS J
     Route: 065
     Dates: start: 20250820, end: 202510
  2. CARBIDOPA\LEVODOPA [Suspect]
     Active Substance: CARBIDOPA\LEVODOPA
     Dosage: UNK, (20 MG + 5 MG (GASTRIC), LAST  ADMIN DATE: 2025, MOR:16CC;MAINT:5;EXTR: 3.5CC), PERCUTANEOUS J-
     Route: 065
     Dates: end: 20250820
  3. CARBIDOPA\LEVODOPA [Suspect]
     Active Substance: CARBIDOPA\LEVODOPA
     Dosage: UNK, (20 MG + 5 MG, MOR:16CC;MAINT:5; EXTR:3.5CC), PERCUTANEOUS J-TUBE
     Route: 065
     Dates: start: 2025, end: 20250731
  4. CARBIDOPA\LEVODOPA [Suspect]
     Active Substance: CARBIDOPA\LEVODOPA
     Dosage: UNK, (MORNING 10 ML; CONTINUOUS 3.8 ML /H; EXTRA 5 ML. GASTRIC PERFUSION),  PERCUTANEOUS J-TUBE
     Route: 065
     Dates: start: 202510
  5. CARBIDOPA\LEVODOPA [Suspect]
     Active Substance: CARBIDOPA\LEVODOPA
     Indication: Dementia with Lewy bodies
     Dosage: UNKUNK, (20 MG + 5 MG, MOR:8CC;MAINT:2.8CC /H;EXTR:2CC),
     Route: 065
  6. RIVASTIGMINE [Suspect]
     Active Substance: RIVASTIGMINE
     Indication: Parkinson^s disease
     Dosage: UNK UNK, QD (ONE PATCH A DAY)
     Route: 062
     Dates: start: 202509, end: 20251102
  7. BETAHISTINE [Concomitant]
     Active Substance: BETAHISTINE
     Indication: Product used for unknown indication
     Dosage: UNK (BEFORE DUODOPA)
     Route: 065
  8. CLOZAPINE [Concomitant]
     Active Substance: CLOZAPINE
     Dosage: 25 MG (ONE TABLET AT 7AM, HALF A TABLET AT  12PM, 4PM, AND 8PM)
     Route: 048
     Dates: end: 20251103
  9. CLOZAPINE [Concomitant]
     Active Substance: CLOZAPINE
     Indication: Product used for unknown indication
     Dosage: UNK
     Route: 048
     Dates: start: 20251103
  10. MIDODRINE HYDROCHLORIDE [Concomitant]
     Active Substance: MIDODRINE HYDROCHLORIDE
     Indication: Orthostatic hypotension
     Dosage: 2 DF 2 DOSAGE FORM (4 TABLET, BEFORE DUODOPA)
     Route: 048
  11. BENSERAZIDE HYDROCHLORIDE\LEVODOPA [Concomitant]
     Active Substance: BENSERAZIDE HYDROCHLORIDE\LEVODOPA
     Indication: Product used for unknown indication
     Dosage: UNK UNK UNK, QHS (1 TABLET,AT BEDTIME)
     Route: 065
     Dates: start: 202508
  12. BENSERAZIDE HYDROCHLORIDE\LEVODOPA [Concomitant]
     Active Substance: BENSERAZIDE HYDROCHLORIDE\LEVODOPA
     Indication: Product used for unknown indication
     Dosage: UNK
     Route: 065
     Dates: start: 202508
  13. MELAMIL [Concomitant]
     Indication: Product used for unknown indication
     Dosage: UNK UNK, QHS (1 TABLET START DATE  TEXT: AT BEDTIME, BEFORE DUODOPA )
     Route: 048
  14. MINIRIN [Concomitant]
     Active Substance: DESMOPRESSIN ACETATE
     Indication: Hypertonic bladder
     Dosage: UNK, (1 TABLET AT BEDTIME, BEFORE  DUODOPA)
     Route: 048
  15. PANTOPRAZOLE [Concomitant]
     Active Substance: PANTOPRAZOLE
     Indication: Product used for unknown indication
     Dosage: UNK, QD (1 TABLET START DATE TEXT:  BEFORE DUODOPA )
     Route: 048
  16. QUETIAPINE [Concomitant]
     Active Substance: QUETIAPINE
     Indication: Product used for unknown indication
     Dosage: UNK, (BEFORE DUODOPA)
     Route: 048
  17. RIVOTRIL [Concomitant]
     Active Substance: CLONAZEPAM
     Indication: Product used for unknown indication
     Dosage: UNK  (BEFORE DUODOPA)
     Route: 048

REACTIONS (4)
  - Mobility decreased [Recovered/Resolved]
  - Psychotic disorder [Recovered/Resolved]
  - Aggression [Recovered/Resolved]
  - Skin reaction [Recovered/Resolved]

NARRATIVE: CASE EVENT DATE: 20250801
